FAERS Safety Report 13536996 (Version 1)
Quarter: 2017Q2

REPORT INFORMATION
  Report Type: Report from Study
  Country: US (occurrence: US)
  Receive Date: 20170511
  Receipt Date: 20170511
  Transmission Date: 20170830
  Serious: Yes (Death, Other)
  Sender: FDA-Public Use
  Company Number: US-SAOL THERAPEUTICS-2017SAO00716

PATIENT
  Age: 55 Year
  Sex: Female

DRUGS (27)
  1. COMPOUNDED BACLOFEN [Suspect]
     Active Substance: BACLOFEN
     Dosage: 139.71 ?G, \DAY
     Route: 037
     Dates: start: 20161102, end: 20161104
  2. BUPIVACAINE. [Suspect]
     Active Substance: BUPIVACAINE
     Dosage: 11.156 MG, \DAY
     Dates: start: 20160907, end: 20160930
  3. COMPOUNDED BACLOFEN [Suspect]
     Active Substance: BACLOFEN
     Dosage: 60.09 ?G, \DAY
     Route: 037
     Dates: start: 20160930, end: 20161102
  4. MORPHINE [Suspect]
     Active Substance: MORPHINE
     Dosage: 1.001 MG, \DAY
     Route: 037
     Dates: start: 20160930, end: 20161102
  5. BUPIVACAINE. [Suspect]
     Active Substance: BUPIVACAINE
     Dosage: 6.009 MG, \DAY
     Route: 037
     Dates: start: 20160930, end: 20161102
  6. BUPIVACAINE. [Suspect]
     Active Substance: BUPIVACAINE
     Dosage: 13.725 MG, \DAY
     Route: 037
     Dates: start: 20161104
  7. MORPHINE [Concomitant]
     Active Substance: MORPHINE
     Route: 048
  8. MORPHINE [Suspect]
     Active Substance: MORPHINE
     Dosage: 1.402 MG, \DAY
     Route: 037
     Dates: start: 20161102, end: 20161104
  9. MORPHINE [Suspect]
     Active Substance: MORPHINE
     Dosage: 2.328 MG, \DAY
     Route: 037
     Dates: start: 20161102, end: 20161104
  10. COMPOUNDED BACLOFEN [Suspect]
     Active Substance: BACLOFEN
     Dosage: 88.85 ?G, \DAY
     Route: 037
     Dates: start: 20160930, end: 20161102
  11. BUPIVACAINE. [Suspect]
     Active Substance: BUPIVACAINE
     Dosage: 8.416 MG, \DAY
     Route: 037
     Dates: start: 20161102, end: 20161104
  12. BUPIVACAINE. [Suspect]
     Active Substance: BUPIVACAINE
     Dosage: 139.71 MG, \DAY
     Route: 037
     Dates: start: 20161102, end: 20161104
  13. OXYCONTIN [Concomitant]
     Active Substance: OXYCODONE HYDROCHLORIDE
     Route: 048
  14. MORPHINE [Suspect]
     Active Substance: MORPHINE
     Dosage: 1.480 MG, \DAY
     Route: 037
     Dates: start: 20160930, end: 20161102
  15. MORPHINE [Suspect]
     Active Substance: MORPHINE
     Dosage: 2.287 MG, \DAY
     Route: 037
     Dates: start: 20161104
  16. COMPOUNDED BACLOFEN [Suspect]
     Active Substance: BACLOFEN
     Dosage: 111.56 ?G, \DAY
     Route: 037
     Dates: start: 20160907, end: 20160930
  17. COMPOUNDED BACLOFEN [Suspect]
     Active Substance: BACLOFEN
     Dosage: 137.25 ?G, \DAY
     Route: 037
     Dates: start: 20161104
  18. MORPHINE [Suspect]
     Active Substance: MORPHINE
     Dosage: 1.500 ?G, \DAY
     Route: 037
     Dates: start: 20160907, end: 20160930
  19. MORPHINE [Suspect]
     Active Substance: MORPHINE
     Dosage: 1.859 MG, \DAY
     Route: 037
     Dates: start: 20160907, end: 20160930
  20. BUPIVACAINE. [Suspect]
     Active Substance: BUPIVACAINE
     Dosage: 8.885 MG, \DAY
     Route: 037
     Dates: start: 20160930, end: 20161102
  21. BUPIVACAINE. [Suspect]
     Active Substance: BUPIVACAINE
     Dosage: 7.518 MG, \DAY
     Route: 037
     Dates: start: 20161104
  22. COMPOUNDED BACLOFEN [Suspect]
     Active Substance: BACLOFEN
     Dosage: 90.04 ?G, \DAY
     Route: 037
     Dates: start: 20160907, end: 20160930
  23. COMPOUNDED BACLOFEN [Suspect]
     Active Substance: BACLOFEN
     Dosage: 75.18 ?G, \DAY
     Route: 037
     Dates: start: 20161104
  24. MORPHINE [Suspect]
     Active Substance: MORPHINE
     Dosage: 1.253 MG, \DAY
     Route: 037
     Dates: start: 20161104
  25. COMPOUNDED BACLOFEN [Suspect]
     Active Substance: BACLOFEN
     Dosage: 84.16 ?G, \DAY
     Route: 037
     Dates: start: 20161102, end: 20161104
  26. BUPIVACAINE. [Suspect]
     Active Substance: BUPIVACAINE
     Dosage: 9.004 MG, \DAY
     Route: 037
     Dates: start: 20160907, end: 20160930
  27. DILAUDID [Suspect]
     Active Substance: HYDROMORPHONE HYDROCHLORIDE
     Route: 037

REACTIONS (22)
  - Medical device site pain [Unknown]
  - Drug ineffective for unapproved indication [Unknown]
  - Oedema peripheral [Unknown]
  - Insomnia [Unknown]
  - Nightmare [Unknown]
  - Back pain [Unknown]
  - Muscular weakness [Unknown]
  - Sedation [Unknown]
  - Drug withdrawal syndrome [Recovered/Resolved]
  - Catheter site pain [Recovered/Resolved]
  - Pain [Unknown]
  - Somnolence [Unknown]
  - Abdominal pain [Unknown]
  - Fear [Unknown]
  - Urinary incontinence [Unknown]
  - Loss of consciousness [Unknown]
  - Medical device site swelling [Unknown]
  - Medical device discomfort [Unknown]
  - Abdominal distension [Unknown]
  - Hypoaesthesia [Unknown]
  - Fall [Unknown]
  - Cardiac failure [Fatal]

NARRATIVE: CASE EVENT DATE: 20160624
